FAERS Safety Report 6039479-0 (Version None)
Quarter: 2009Q1

REPORT INFORMATION
  Report Type: 
  Country: None (occurrence: None)
  Receive Date: 20090114
  Receipt Date: 20081231
  Transmission Date: 20090719
  Serious: Yes (Other)
  Sender: FDA-Public Use
  Company Number: ALA_00226_2009

PATIENT
  Sex: Male

DRUGS (1)
  1. PEG 3350 AND ELECTROLYTES 4000 ML (NOT SPECIFIED) [Suspect]
     Indication: COLONOSCOPY
     Dosage: 2000 ML ORAL
     Route: 048
     Dates: start: 20081214

REACTIONS (6)
  - DIARRHOEA [None]
  - DYSPNOEA [None]
  - LOCAL SWELLING [None]
  - PRURITUS GENERALISED [None]
  - TREMOR [None]
  - VOMITING [None]
